FAERS Safety Report 6142331-3 (Version None)
Quarter: 2009Q2

REPORT INFORMATION
  Report Type: 
  Country: None (occurrence: None)
  Receive Date: 20090402
  Receipt Date: 20090402
  Transmission Date: 20091009
  Serious: No
  Sender: FDA-Public Use
  Company Number: None

PATIENT
  Sex: Female
  Weight: 56.6996 kg

DRUGS (1)
  1. SUMATRYPTAN 100 MG TAB / RANBAXY [Suspect]
     Indication: MIGRAINE
     Dosage: 100 MG 1 TAB PRN FOR HEADACHE PO NOV/DEC 08 (APPROXIMATE DATE)
     Route: 048
     Dates: start: 20080101

REACTIONS (4)
  - CONDITION AGGRAVATED [None]
  - DRUG INEFFECTIVE [None]
  - MIGRAINE [None]
  - THERAPEUTIC RESPONSE UNEXPECTED WITH DRUG SUBSTITUTION [None]
